FAERS Safety Report 6265897-1 (Version None)
Quarter: 2009Q3

REPORT INFORMATION
  Report Type: 
  Country: None (occurrence: None)
  Receive Date: 20090709
  Receipt Date: 20090709
  Transmission Date: 20100115
  Serious: Yes (Other)
  Sender: FDA-Public Use
  Company Number: None

PATIENT
  Age: 68 Year
  Sex: Male
  Weight: 72.5755 kg

DRUGS (2)
  1. ADVAIR HFA [Suspect]
     Indication: ASTHMA
     Dosage: 2 PUFFS TWICE PER DAY INHAL
     Route: 055
     Dates: start: 20090404, end: 20090512
  2. FLOVENT HFA [Suspect]
     Indication: ASTHMA
     Dosage: 2 PUFFS TWICE PER DAY INHAL
     Route: 055
     Dates: start: 20090627, end: 20090708

REACTIONS (5)
  - DYSPHONIA [None]
  - EYE PRURITUS [None]
  - NASAL CONGESTION [None]
  - RHINORRHOEA [None]
  - THROAT IRRITATION [None]
